FAERS Safety Report 10122676 (Version 2)
Quarter: 2015Q1

REPORT INFORMATION
  Report Type: Other
  Country: US (occurrence: US)
  Receive Date: 20140427
  Receipt Date: 20150213
  Transmission Date: 20150720
  Serious: Yes (Hospitalization, Other)
  Sender: FDA-Public Use
  Company Number: US-GSKPPD-2014GSK027300

PATIENT
  Age: 83 Year
  Sex: Female

DRUGS (5)
  1. ALDACTAZIDE [Concomitant]
     Active Substance: HYDROCHLOROTHIAZIDE\SPIRONOLACTONE
     Dosage: 20 PER 25
  2. LASIX [Concomitant]
     Active Substance: FUROSEMIDE
  3. AVANDIA [Suspect]
     Active Substance: ROSIGLITAZONE MALEATE
     Indication: DIABETES MELLITUS
     Dosage: DATES OF AVANDIA USE COULD NOT BE CONFIRMED IN RECORDS REVIEWED.
     Route: 048
  4. PROCARDIA XL [Concomitant]
     Active Substance: NIFEDIPINE
  5. ACCUPRIL [Concomitant]
     Active Substance: QUINAPRIL HYDROCHLORIDE

REACTIONS (2)
  - Cerebrovascular accident [Unknown]
  - Cardiac failure congestive [Recovered/Resolved]

NARRATIVE: CASE EVENT DATE: 20020529
